FAERS Safety Report 9540689 (Version 1)
Quarter: 2013Q3

REPORT INFORMATION
  Report Type: Report from Study
  Country: US (occurrence: US)
  Receive Date: 20130920
  Receipt Date: 20130920
  Transmission Date: 20140515
  Serious: Yes (Other)
  Sender: FDA-Public Use
  Company Number: US-ROCHE-1277608

PATIENT
  Sex: Female

DRUGS (15)
  1. LUCENTIS [Suspect]
     Indication: AGE-RELATED MACULAR DEGENERATION
     Route: 065
  2. ALPRAZOLAM [Concomitant]
  3. ASPIRIN [Concomitant]
     Route: 065
  4. CYANOCOBALAMIN [Concomitant]
  5. LEVOTHYROXINE [Concomitant]
  6. LOVASTATIN [Concomitant]
  7. MIRALAX [Concomitant]
  8. MYRBETRIQ [Concomitant]
  9. NASONEX [Concomitant]
  10. PHAZYME [Concomitant]
  11. POLY-IRON [Concomitant]
  12. SYMBICORT [Concomitant]
     Route: 065
  13. VESICARE [Concomitant]
  14. XOPENEX [Concomitant]
  15. OXYCODONE [Concomitant]

REACTIONS (4)
  - Visual acuity reduced [Unknown]
  - Vitreous floaters [Unknown]
  - Cough [Unknown]
  - Deafness [Unknown]
